FAERS Safety Report 4313364-4 (Version None)
Quarter: 2004Q1

REPORT INFORMATION
  Report Type: 
  Country: None (occurrence: None)
  Receive Date: 20040304
  Receipt Date: 20040220
  Transmission Date: 20041129
  Serious: Yes (Hospitalization)
  Sender: FDA-Public Use
  Company Number: 2004007157

PATIENT
  Age: 74 Year
  Sex: Male
  Weight: 67.2 kg

DRUGS (10)
  1. ATARAX [Suspect]
     Indication: ECZEMA ASTEATOTIC
     Dosage: 25 MG (DAILY), ORAL
     Route: 048
     Dates: start: 20040120, end: 20040126
  2. ATARAX [Suspect]
     Indication: PITYRIASIS
     Dosage: 25 MG (DAILY), ORAL
     Route: 048
     Dates: start: 20040120, end: 20040126
  3. IRSOGLADINE MALEATE (IRSOGLADINE MALEATE) [Concomitant]
  4. CELIPROLOL HYDROCHLORIDE (CELIPROLOL HYDROCHLORIDE) [Concomitant]
  5. AMLODIPINE BESYLATE [Concomitant]
  6. CANDESARTAN CILEXETIL (CANDESARTAN CILEXETIL) [Concomitant]
  7. LORNOXICAM (LORNOXICAM) [Concomitant]
  8. RETINOL (RETINOL) [Concomitant]
  9. DIFLUPREDNATE (DIFLUPREDNATE) [Concomitant]
  10. KETOPROFEN [Concomitant]

REACTIONS (4)
  - BLOOD BILIRUBIN INCREASED [None]
  - HEPATITIS [None]
  - JAUNDICE [None]
  - PRURITUS [None]
